FAERS Safety Report 9316230 (Version 2)
Quarter: 2013Q4

REPORT INFORMATION
  Report Type: Spontaneous
  Country: GB (occurrence: None)
  Receive Date: 20130521
  Receipt Date: 20131022
  Transmission Date: 20140711
  Serious: Yes (Other)
  Sender: FDA-Public Use
  Company Number: AUR-APL-2013-03966

PATIENT
  Sex: Male

DRUGS (3)
  1. RIBAVIRIN [Suspect]
     Indication: HEPATITIS C
     Dosage: ORAL
  2. TELAPREVIR [Suspect]
     Indication: HEPATITIS C
     Route: 048
  3. PEGYLATED INTERFERON [Suspect]
     Indication: HEPATITIS C

REACTIONS (2)
  - Rash [None]
  - Impetigo [None]
